FAERS Safety Report 11363134 (Version 3)
Quarter: 2017Q4

REPORT INFORMATION
  Report Type: Spontaneous
  Country: US (occurrence: US)
  Receive Date: 20150810
  Receipt Date: 20171228
  Transmission Date: 20180320
  Serious: Yes (Hospitalization, Other)
  Sender: FDA-Public Use
  Company Number: US-BRISTOL-MYERS SQUIBB COMPANY-BMS-2015-052069

PATIENT
  Age: 81 Year
  Sex: Male
  Weight: 88 kg

DRUGS (2)
  1. ELIQUIS [Suspect]
     Active Substance: APIXABAN
     Indication: CEREBROVASCULAR ACCIDENT PROPHYLAXIS
     Route: 065
  2. ASPIRIN                            /00002701/ [Suspect]
     Active Substance: ASPIRIN
     Indication: PRODUCT USED FOR UNKNOWN INDICATION
     Dosage: 81 MG, QD
     Route: 048

REACTIONS (6)
  - Gastric ulcer [Unknown]
  - Gastrointestinal haemorrhage [Unknown]
  - Transfusion [Unknown]
  - Diverticulum intestinal [Unknown]
  - Wrist fracture [Unknown]
  - Anaemia [Unknown]

NARRATIVE: CASE EVENT DATE: 201501
